FAERS Safety Report 17009705 (Version 1)
Quarter: 2019Q4

REPORT INFORMATION
  Report Type: Spontaneous
  Country: US (occurrence: US)
  Receive Date: 20190929
  Receipt Date: 20190929
  Transmission Date: 20200122
  Serious: No
  Sender: FDA-Public Use
  Company Number: None

PATIENT
  Age: 71 Year
  Sex: Male
  Weight: 82.9 kg

DRUGS (2)
  1. CISPLATIN. [Suspect]
     Active Substance: CISPLATIN
     Dates: end: 20190911
  2. GEMCITABINE HYDROCHLORIDE. [Suspect]
     Active Substance: GEMCITABINE HYDROCHLORIDE
     Dates: end: 20190911

REACTIONS (7)
  - Acute kidney injury [None]
  - Gait disturbance [None]
  - Confusional state [None]
  - Lethargy [None]
  - Urinary tract infection [None]
  - Dizziness [None]
  - Muscular weakness [None]

NARRATIVE: CASE EVENT DATE: 20190917
